FAERS Safety Report 23816118 (Version 2)
Quarter: 2024Q2

REPORT INFORMATION
  Report Type: Report from Study
  Country: US (occurrence: US)
  Receive Date: 20240503
  Receipt Date: 20240511
  Transmission Date: 20240715
  Serious: Yes (Hospitalization)
  Sender: FDA-Public Use
  Company Number: US-ABBVIE-5742153

PATIENT
  Age: 73 Year
  Sex: Female

DRUGS (1)
  1. SKYRIZI [Suspect]
     Active Substance: RISANKIZUMAB-RZAA
     Indication: Product used for unknown indication
     Route: 058
     Dates: start: 202401

REACTIONS (3)
  - Fall [Recovering/Resolving]
  - Hip fracture [Recovering/Resolving]
  - Lower limb fracture [Recovering/Resolving]

NARRATIVE: CASE EVENT DATE: 20240425
